FAERS Safety Report 22283563 (Version 3)
Quarter: 2023Q2

REPORT INFORMATION
  Report Type: Spontaneous
  Country: US (occurrence: US)
  Receive Date: 20230504
  Receipt Date: 20230630
  Transmission Date: 20230722
  Serious: No
  Sender: FDA-Public Use
  Company Number: US-PFIZER INC-202300174839

PATIENT
  Age: 2 Year
  Sex: Male
  Weight: 12.245 kg

DRUGS (1)
  1. SOMATROPIN [Suspect]
     Active Substance: SOMATROPIN
     Indication: Blood growth hormone abnormal
     Dosage: 0.2 MG
     Dates: start: 20230407

REACTIONS (2)
  - Poor quality device used [Unknown]
  - Product reconstitution quality issue [Unknown]
